FAERS Safety Report 7461762-2 (Version None)
Quarter: 2011Q2

REPORT INFORMATION
  Report Type: 
  Country: None (occurrence: None)
  Receive Date: 20110506
  Receipt Date: 20110107
  Transmission Date: 20111010
  Serious: Yes (Hospitalization)
  Sender: FDA-Public Use
  Company Number: US-BAYER-201030625NA

PATIENT
  Age: 34 Year
  Sex: Female
  Weight: 61.224 kg

DRUGS (1)
  1. YASMIN [Suspect]
     Route: 048
     Dates: start: 20040101

REACTIONS (1)
  - PULMONARY EMBOLISM [None]
